FAERS Safety Report 11169792 (Version 2)
Quarter: 2015Q3

REPORT INFORMATION
  Report Type: Spontaneous
  Country: US (occurrence: US)
  Receive Date: 20150606
  Receipt Date: 20150707
  Transmission Date: 20151125
  Serious: Yes (Hospitalization, Other)
  Sender: FDA-Public Use
  Company Number: US-AUROBINDO-AUR-APL-2015-04880

PATIENT
  Age: 58 Year
  Sex: Male

DRUGS (1)
  1. BUPIVACAINE HYDROCHLORIDE. [Suspect]
     Active Substance: BUPIVACAINE HYDROCHLORIDE
     Indication: ANAESTHESIA PROCEDURE
     Route: 065

REACTIONS (10)
  - Atelectasis [Recovered/Resolved]
  - Dyspnoea paroxysmal nocturnal [Recovered/Resolved]
  - Pleural effusion [Recovered/Resolved]
  - Chest pain [Recovered/Resolved]
  - Eyelid ptosis [Recovered/Resolved]
  - Miosis [Recovered/Resolved]
  - Horner^s syndrome [Recovered/Resolved]
  - Diaphragmatic paralysis [Recovered/Resolved]
  - Total lung capacity decreased [Recovered/Resolved]
  - Tachypnoea [Recovered/Resolved]
